FAERS Safety Report 25836193 (Version 1)
Quarter: 2025Q3

REPORT INFORMATION
  Report Type: Spontaneous
  Country: US (occurrence: None)
  Receive Date: 20250922
  Receipt Date: 20250922
  Transmission Date: 20251021
  Serious: Yes (Death)
  Sender: FDA-CTU
  Company Number: None

PATIENT
  Age: 46 Year
  Sex: Female

DRUGS (4)
  1. HERBALS\MITRAGYNINE [Suspect]
     Active Substance: HERBALS\MITRAGYNINE
  2. 7-HYDROXYMITRAGYNINE [Suspect]
     Active Substance: 7-HYDROXYMITRAGYNINE
  3. MITRAGYNINE PSEUDOINDOXYL [Suspect]
     Active Substance: MITRAGYNINE PSEUDOINDOXYL
  4. 7-HYDROXYMITRAGYNINE [Suspect]
     Active Substance: 7-HYDROXYMITRAGYNINE

REACTIONS (2)
  - Unresponsive to stimuli [None]
  - Drug abuse [None]

NARRATIVE: CASE EVENT DATE: 20250724
